FAERS Safety Report 7630072-2 (Version None)
Quarter: 2011Q3

REPORT INFORMATION
  Report Type: 
  Country: None (occurrence: None)
  Receive Date: 20110714
  Receipt Date: 20110708
  Transmission Date: 20111222
  Serious: Yes (Hospitalization)
  Sender: FDA-Public Use
  Company Number: 2010SP063542

PATIENT
  Age: 3 Year
  Sex: Male

DRUGS (4)
  1. TOPOTECAN [Suspect]
     Indication: NEOPLASM
     Dosage: 0.470 MG; QD; IV, 0.480 MG; QD; IV
     Route: 042
     Dates: start: 20110207, end: 20110210
  2. TOPOTECAN [Suspect]
     Indication: NEOPLASM
     Dosage: 0.470 MG; QD; IV, 0.480 MG; QD; IV
     Route: 042
     Dates: start: 20101116, end: 20101120
  3. TEMODAL [Suspect]
     Indication: NEOPLASM
     Dosage: 95 MG; QD; PO, 95 MG; QD; PO
     Route: 048
     Dates: start: 20101116, end: 20101120
  4. TEMODAL [Suspect]
     Indication: NEOPLASM
     Dosage: 95 MG; QD; PO, 95 MG; QD; PO
     Route: 048
     Dates: start: 20110207, end: 20110210

REACTIONS (6)
  - STAPHYLOCOCCAL INFECTION [None]
  - FEBRILE BONE MARROW APLASIA [None]
  - BLOOD CULTURE POSITIVE [None]
  - BRONCHITIS [None]
  - BLOOD PRESSURE DIASTOLIC INCREASED [None]
  - DEVICE RELATED INFECTION [None]
